FAERS Safety Report 4892509-1 (Version None)
Quarter: 2006Q1

REPORT INFORMATION
  Report Type: 
  Country: None (occurrence: None)
  Receive Date: 20060126
  Receipt Date: 20060116
  Transmission Date: 20060701
  Serious: Yes (Death, Hospitalization)
  Sender: FDA-Public Use
  Company Number: JP-BRISTOL-MYERS SQUIBB COMPANY-13248380

PATIENT
  Age: 34 Year
  Sex: Female

DRUGS (2)
  1. TAXOL [Suspect]
     Indication: GASTRIC CANCER
     Route: 042
     Dates: start: 20051227, end: 20051227
  2. FURTULON [Concomitant]
     Indication: GASTRIC CANCER
     Route: 048
     Dates: start: 20051227, end: 20051227

REACTIONS (2)
  - BONE MARROW FAILURE [None]
  - DEATH [None]
